FAERS Safety Report 5528530-X (Version None)
Quarter: 2007Q4

REPORT INFORMATION
  Report Type: 
  Country: None (occurrence: None)
  Receive Date: 20071121
  Receipt Date: 20071106
  Transmission Date: 20080405
  Serious: Yes (Death, Hospitalization)
  Sender: FDA-Public Use
  Company Number: AZAUK200700405

PATIENT
  Age: 72 Year
  Sex: Female

DRUGS (4)
  1. VIDAZA (AZACITIDINE) (INFECTION) [Suspect]
     Indication: MYELODYSPLASTIC SYNDROME
     Dosage: (130 MG, DAILY X 5 DAYS), SUBCUTANEOUS
     Route: 058
     Dates: start: 20070716, end: 20070720
  2. VALPROATE SODIUM [Suspect]
     Indication: MYELODYSPLASTIC SYNDROME
     Dosage: (600 MG, DAILY), ORAL
     Route: 048
     Dates: end: 20070727
  3. THEOPHYLLINE [Suspect]
     Indication: MYELODYSPLASTIC SYNDROME
     Dosage: (175 MG, DAILY), ORAL
     Route: 048
     Dates: end: 20070520
  4. ATRA [Suspect]
     Indication: MYELODYSPLASTIC SYNDROME
     Dosage: (80 MG, DAILY)
     Dates: end: 20070520

REACTIONS (3)
  - DRUG TOXICITY [None]
  - NEUTROPENIC SEPSIS [None]
  - WHITE BLOOD CELL COUNT INCREASED [None]
